FAERS Safety Report 12861157 (Version 1)
Quarter: 2016Q4

REPORT INFORMATION
  Report Type: Spontaneous
  Country: US (occurrence: US)
  Receive Date: 20161019
  Receipt Date: 20161019
  Transmission Date: 20170207
  Serious: Yes (Hospitalization)
  Sender: FDA-Public Use
  Company Number: US-BEH-2016063043

PATIENT
  Age: 11 Year
  Sex: Female

DRUGS (2)
  1. BERINERT [Suspect]
     Active Substance: HUMAN C1-ESTERASE INHIBITOR
     Indication: HEREDITARY ANGIOEDEMA
     Dosage: START DATE: ??-???-2015
     Route: 042
  2. KALBITOR [Suspect]
     Active Substance: ECALLANTIDE

REACTIONS (4)
  - Hereditary angioedema [Unknown]
  - Hereditary angioedema [Unknown]
  - Swelling [Unknown]
  - Swelling [Unknown]

NARRATIVE: CASE EVENT DATE: 20160405
